FAERS Safety Report 7621003-X (Version None)
Quarter: 2011Q3

REPORT INFORMATION
  Report Type: 
  Country: None (occurrence: None)
  Receive Date: 20110719
  Receipt Date: 20110315
  Transmission Date: 20111222
  Serious: No
  Sender: FDA-Public Use
  Company Number: US-KINGPHARMUSA00001-K201100290

PATIENT
  Age: 38 Year
  Sex: Male
  Weight: 92.971 kg

DRUGS (10)
  1. LEVOXYL [Suspect]
     Indication: HYPOTHYROIDISM
     Dosage: 150 MCG, QD
     Route: 048
     Dates: start: 20110101, end: 20110201
  2. LEVOXYL [Suspect]
     Dosage: 300 MG, SINGLE
     Route: 048
     Dates: start: 20110201, end: 20110201
  3. FISH OIL [Concomitant]
  4. CALCIUM CARBONATE [Concomitant]
  5. LEVOXYL [Suspect]
     Dosage: 150 MCG QD FOR 5 DAYS + 75 MCG ON SUNDAY/WEDNESDAY
     Route: 048
     Dates: start: 20110301
  6. LEVOXYL [Suspect]
     Dosage: 75 MCG, QD
     Route: 048
     Dates: start: 20110101, end: 20110101
  7. LEVOXYL [Suspect]
     Dosage: 150 MCG QD FOR 6 DAYS + 300 MCG Q7TH DAY
     Route: 048
     Dates: end: 20110301
  8. MULTI-VITAMIN [Concomitant]
  9. VITAMIN D [Concomitant]
     Indication: VITAMIN D DEFICIENCY
  10. MAGNESIUM [Concomitant]
     Dosage: 100 MG, UNK

REACTIONS (4)
  - PALPITATIONS [None]
  - BLOOD THYROID STIMULATING HORMONE INCREASED [None]
  - ANXIETY [None]
  - FATIGUE [None]
